FAERS Safety Report 8772519 (Version 1)
Quarter: 2012Q4

REPORT INFORMATION
  Report Type: 
  Country: US (occurrence: US)
  Receive Date: 20120905
  Receipt Date: 20120905
  Transmission Date: 20130627
  Serious: Yes (Hospitalization)
  Sender: FDA-Public Use
  Company Number: US-PFIZER INC-2012214390

PATIENT
  Age: 72 Year
  Sex: Female

DRUGS (5)
  1. SUTENT [Suspect]
     Indication: RENAL CELL CARCINOMA
     Dosage: UNK
     Dates: end: 2012
  2. LACTULOSE [Concomitant]
     Dosage: Strength 20 mg/30 ml, UNK
  3. LISINOPRIL [Concomitant]
     Dosage: 5 mg, UNK
  4. METFORMIN [Concomitant]
     Dosage: 500 mg, UNK
  5. SUCRALFATE [Concomitant]
     Dosage: Strength 100 mg/ml, UNK

REACTIONS (20)
  - Renal failure acute [Unknown]
  - Hepatic failure [Unknown]
  - Pancytopenia [Unknown]
  - Nausea [Recovered/Resolved]
  - Vomiting [Recovered/Resolved]
  - Diarrhoea [Recovered/Resolved]
  - Jaundice [Unknown]
  - Dehydration [Recovered/Resolved]
  - Liver disorder [Unknown]
  - Hepatic cirrhosis [Unknown]
  - Hepatic function abnormal [Unknown]
  - Hypernatraemia [Unknown]
  - Ascites [Unknown]
  - Gallbladder disorder [Unknown]
  - Renal mass [Unknown]
  - Vein disorder [Unknown]
  - Blood bilirubin increased [Unknown]
  - Blood alkaline phosphatase increased [Unknown]
  - Disease progression [Unknown]
  - Renal cell carcinoma [Unknown]
